FAERS Safety Report 11682863 (Version 2)
Quarter: 2015Q4

REPORT INFORMATION
  Report Type: Spontaneous
  Country: IT (occurrence: IT)
  Receive Date: 20151029
  Receipt Date: 20151104
  Transmission Date: 20160304
  Serious: Yes (Hospitalization)
  Sender: FDA-Public Use
  Company Number: IT-SA-2015SA170621

PATIENT
  Age: 47 Year
  Sex: Male

DRUGS (9)
  1. PLAVIX [Suspect]
     Active Substance: CLOPIDOGREL BISULFATE
     Indication: MYOCARDIAL INFARCTION
     Route: 048
  2. PANTORC [Concomitant]
     Active Substance: PANTOPRAZOLE SODIUM
     Route: 048
  3. HUMALOG MIX75/25 [Concomitant]
     Active Substance: INSULIN LISPRO
     Route: 058
  4. TEGRETOL [Concomitant]
     Active Substance: CARBAMAZEPINE
     Route: 048
  5. CARDIOASPIRIN [Suspect]
     Active Substance: ASPIRIN
     Indication: MYOCARDIAL INFARCTION
     Dosage: FORM: GASTRORESISTANT TABLET
     Route: 048
  6. TORVAST [Concomitant]
     Active Substance: ATORVASTATIN
  7. TRIATEC [Concomitant]
     Active Substance: RAMIPRIL
     Dosage: STRENGTH: 2.5MG DIVISIBLE TABLET
     Route: 048
  8. LANTUS [Concomitant]
     Active Substance: INSULIN GLARGINE
     Dosage: 100 IU/ML INJECTABLE SOLUTION - FOR SC USE - CARTRIDGE 3 ML 5 CARTRIDGE
     Route: 058
  9. DILATREND [Concomitant]
     Active Substance: CARVEDILOL
     Dosage: STRENGTH: 6.25MG
     Route: 048

REACTIONS (1)
  - Pollakiuria [Unknown]

NARRATIVE: CASE EVENT DATE: 20110819
